FAERS Safety Report 6275616-0 (Version None)
Quarter: 2009Q3

REPORT INFORMATION
  Report Type: 
  Country: None (occurrence: None)
  Receive Date: 20090721
  Receipt Date: 20090714
  Transmission Date: 20100115
  Serious: Yes (Other)
  Sender: FDA-Public Use
  Company Number: JP-PFIZER INC-2009239117

PATIENT
  Age: 60 Year

DRUGS (1)
  1. ATARAX [Suspect]
     Dosage: 25 MG, 1X/DAY
     Route: 048

REACTIONS (1)
  - OLIGURIA [None]
